FAERS Safety Report 24533258 (Version 3)
Quarter: 2024Q4

REPORT INFORMATION
  Report Type: Report from Study
  Country: US (occurrence: US)
  Receive Date: 20241022
  Receipt Date: 20241216
  Transmission Date: 20250114
  Serious: Yes (Other)
  Sender: ABBVIE
  Company Number: US-ABBVIE-5972267

PATIENT
  Age: 50 Year
  Sex: Male
  Weight: 140.61 kg

DRUGS (4)
  1. RINVOQ [Suspect]
     Active Substance: UPADACITINIB
     Indication: Ankylosing spondylitis
     Dosage: LAST ADMIN DATE: 2024,?FORM STRENGTH: 15 MILLIGRAM
     Route: 048
     Dates: start: 20240523
  2. RINVOQ [Suspect]
     Active Substance: UPADACITINIB
     Indication: Ankylosing spondylitis
     Dosage: FIRST ADMIN DATE: 2024, FORM STRENGTH: 15 MILLIGRAM
     Route: 048
     Dates: end: 20241021
  3. MELOXICAM [Concomitant]
     Active Substance: MELOXICAM
     Indication: Pain
  4. TYLENOL [Concomitant]
     Active Substance: ACETAMINOPHEN
     Indication: Pain

REACTIONS (2)
  - Thyroid cancer [Recovering/Resolving]
  - Spinal operation [Recovering/Resolving]

NARRATIVE: CASE EVENT DATE: 20240601
